FAERS Safety Report 6527488-4 (Version None)
Quarter: 2010Q1

REPORT INFORMATION
  Report Type: 
  Country: None (occurrence: None)
  Receive Date: 20100105
  Receipt Date: 20091230
  Transmission Date: 20100710
  Serious: Yes (Other)
  Sender: FDA-Public Use
  Company Number: CHPA2009US24217

PATIENT
  Age: 65 Year
  Sex: Female

DRUGS (2)
  1. EX-LAX MAX STR LAX PILLS SENNA (NCH) [Suspect]
     Indication: CONSTIPATION
     Dosage: 50 MG, ONCE/SINGLE
     Route: 048
     Dates: start: 20091230, end: 20091230
  2. OXYCODONE [Concomitant]
     Indication: PAIN

REACTIONS (6)
  - ABASIA [None]
  - DRUG INEFFECTIVE [None]
  - FLATULENCE [None]
  - GROIN PAIN [None]
  - PAIN [None]
  - WRONG TECHNIQUE IN DRUG USAGE PROCESS [None]
